FAERS Safety Report 5518396-6 (Version None)
Quarter: 2007Q4

REPORT INFORMATION
  Report Type: 
  Country: None (occurrence: None)
  Receive Date: 20071115
  Receipt Date: 20071108
  Transmission Date: 20080405
  Serious: Yes (Other)
  Sender: FDA-Public Use
  Company Number: JP-MERCK-0711USA02345

PATIENT
  Age: 73 Year
  Sex: Male

DRUGS (2)
  1. PEPCID RPD [Suspect]
     Indication: REFLUX OESOPHAGITIS
     Route: 048
     Dates: start: 20071001
  2. MUCOSTA [Suspect]
     Route: 048
     Dates: start: 20051001

REACTIONS (1)
  - INTERSTITIAL LUNG DISEASE [None]
